FAERS Safety Report 15860058 (Version 2)
Quarter: 2019Q4

REPORT INFORMATION
  Report Type: Report from Study
  Country: IT (occurrence: IT)
  Receive Date: 20190123
  Receipt Date: 20191127
  Transmission Date: 20200122
  Serious: Yes (Other)
  Sender: FDA-Public Use
  Company Number: IT-TEVA-2019-IT-100086

PATIENT
  Age: 53 Year
  Sex: Female

DRUGS (4)
  1. FLUOROURACIL. [Suspect]
     Active Substance: FLUOROURACIL
     Indication: BREAST CANCER
     Dosage: ON DAY 1; ADDITIONAL INFO: OFF LABEL USE
     Route: 040
  2. CYCLOPHOSPHAMIDE. [Interacting]
     Active Substance: CYCLOPHOSPHAMIDE
     Indication: BREAST CANCER
     Dosage: ON DAY 1; ADDITIONAL INFO: OFF LABEL USE
     Route: 042
  3. INTERLEUKIN-2 [Interacting]
     Active Substance: ALDESLEUKIN
     Indication: BREAST CANCER
     Dosage: 18 MUI/M 2 ON DAYS 4-6 AND DAYS 18-20; ADDITIONAL INFO: OFF LABEL USE
     Route: 041
  4. INTERLEUKIN-2 [Interacting]
     Active Substance: ALDESLEUKIN
     Dosage: 4.5 MUI/M 2 ON DAYS 3-6 AND DAYS 17-20
     Route: 058

REACTIONS (6)
  - Influenza like illness [Unknown]
  - Drug interaction [Recovered/Resolved]
  - Off label use [Unknown]
  - Blood loss anaemia [Recovered/Resolved]
  - Product use issue [Unknown]
  - Fatigue [Recovering/Resolving]
